FAERS Safety Report 9444583 (Version 1)
Quarter: 2013Q3

REPORT INFORMATION
  Report Type: Spontaneous
  Country: US (occurrence: None)
  Receive Date: 20130806
  Receipt Date: 20130806
  Transmission Date: 20140515
  Serious: Yes (Disabling)
  Sender: FDA-Public Use
  Company Number: None

PATIENT
  Age: 10 Year
  Sex: Male
  Weight: 85.28 kg

DRUGS (1)
  1. VYVANSE [Suspect]
     Route: 048
     Dates: start: 20130701, end: 20130801

REACTIONS (2)
  - Eye irritation [None]
  - Eye pain [None]
